FAERS Safety Report 23794844 (Version 5)
Quarter: 2025Q1

REPORT INFORMATION
  Report Type: Spontaneous
  Country: US (occurrence: US)
  Receive Date: 20240429
  Receipt Date: 20250303
  Transmission Date: 20250408
  Serious: Yes (Hospitalization, Other)
  Sender: TRAVERE THERAPEUTICS
  Company Number: US-TRAVERE-2024TVT00382

PATIENT
  Age: 50 Year
  Sex: Male
  Weight: 102.3 kg

DRUGS (11)
  1. FILSPARI [Suspect]
     Active Substance: SPARSENTAN
     Indication: Focal segmental glomerulosclerosis
     Route: 048
     Dates: start: 20240416
  2. FILSPARI [Suspect]
     Active Substance: SPARSENTAN
     Indication: IgA nephropathy
     Route: 048
  3. ELIQUIS [Concomitant]
     Active Substance: APIXABAN
  4. ZYLOPRIM [Concomitant]
     Active Substance: ALLOPURINOL
  5. COLCRYS [Concomitant]
     Active Substance: COLCHICINE
  6. PROSCAR [Concomitant]
     Active Substance: FINASTERIDE
  7. MAGNESIUM OXIDE [Concomitant]
     Active Substance: MAGNESIUM OXIDE
  8. FISH OIL [Concomitant]
     Active Substance: FISH OIL
  9. PERCOCET [Concomitant]
     Active Substance: ACETAMINOPHEN\OXYCODONE HYDROCHLORIDE
  10. FLOMAX [Concomitant]
     Active Substance: TAMSULOSIN HYDROCHLORIDE
  11. LAMISIL [Concomitant]
     Active Substance: TERBINAFINE HYDROCHLORIDE

REACTIONS (5)
  - Joint swelling [Unknown]
  - Arthritis infective [Recovered/Resolved]
  - Inguinal hernia [Unknown]
  - Impaired work ability [Unknown]
  - Extra dose administered [Unknown]
